FAERS Safety Report 5531128-0 (Version None)
Quarter: 2007Q4

REPORT INFORMATION
  Report Type: 
  Country: None (occurrence: None)
  Receive Date: 20071130
  Receipt Date: 20071119
  Transmission Date: 20080405
  Serious: Yes (Other)
  Sender: FDA-Public Use
  Company Number: US-PFIZER INC-2007098501

PATIENT
  Sex: Female
  Weight: 100 kg

DRUGS (3)
  1. CHANTIX [Suspect]
     Indication: SMOKING CESSATION THERAPY
  2. SYNTHROID [Concomitant]
  3. VITAMIN CAP [Concomitant]

REACTIONS (4)
  - CARPAL TUNNEL DECOMPRESSION [None]
  - DRUG INEFFECTIVE [None]
  - SMOKER [None]
  - STRESS [None]
